FAERS Safety Report 16200364 (Version 1)
Quarter: 2019Q2

REPORT INFORMATION
  Report Type: Spontaneous
  Country: IN (occurrence: IN)
  Receive Date: 20190416
  Receipt Date: 20190416
  Transmission Date: 20190711
  Serious: No
  Sender: FDA-Public Use
  Company Number: IN-LUPIN LIMITED-2018-01622

PATIENT
  Age: 23 Year
  Sex: Male

DRUGS (2)
  1. R-CIN CAPS 600 MG [Suspect]
     Active Substance: RIFAMPIN
     Indication: LEPROSY
     Dosage: 1 DF, ONCE A MONTH
     Route: 048
     Dates: start: 20170721
  2. HANSEPRAN [Suspect]
     Active Substance: CLOFAZIMINE
     Indication: LEPROSY
     Dosage: 1 DF, QD
     Route: 048
     Dates: start: 2017

REACTIONS (2)
  - Chromaturia [Unknown]
  - Skin discolouration [Not Recovered/Not Resolved]

NARRATIVE: CASE EVENT DATE: 2017
